FAERS Safety Report 12677833 (Version 2)
Quarter: 2016Q4

REPORT INFORMATION
  Report Type: Spontaneous
  Country: JP (occurrence: JP)
  Receive Date: 20160823
  Receipt Date: 20161228
  Transmission Date: 20170207
  Serious: No
  Sender: FDA-Public Use
  Company Number: JP-ELI_LILLY_AND_COMPANY-JP201608007952

PATIENT
  Age: 80 Year
  Sex: Male

DRUGS (2)
  1. ZALUTIA [Suspect]
     Active Substance: TADALAFIL
     Indication: NOCTURIA
     Dosage: 5 MG, QD
     Route: 048
     Dates: start: 20160715
  2. ADALAT [Concomitant]
     Active Substance: NIFEDIPINE
     Dosage: 20 MG, UNK

REACTIONS (4)
  - Visual acuity reduced [Unknown]
  - Drug ineffective [Unknown]
  - Rash pruritic [Recovered/Resolved]
  - Dizziness postural [Recovered/Resolved]

NARRATIVE: CASE EVENT DATE: 201608
